FAERS Safety Report 7931762 (Version 2)
Quarter: 2012Q4

REPORT INFORMATION
  Report Type: 
  Country: US (occurrence: US)
  Receive Date: 20110505
  Receipt Date: 20121029
  Transmission Date: 20130627
  Serious: Yes (Other)
  Sender: FDA-Public Use
  Company Number: US-ROCHE-749316

PATIENT
  Age: 15 Year
  Sex: Female
  Weight: 47.2 kg

DRUGS (4)
  1. ACCUTANE [Suspect]
     Indication: ACNE
     Dosage: 40 QAM and 10 QHS
     Route: 065
  2. ACCUTANE [Suspect]
     Route: 065
  3. ACCUTANE [Suspect]
     Dosage: 40 QAM and 10 QHS
     Route: 065
  4. ACCUTANE [Suspect]
     Route: 065
     Dates: start: 19860923, end: 1987

REACTIONS (7)
  - Colitis ulcerative [Unknown]
  - Gastrointestinal injury [Unknown]
  - Crohn^s disease [Unknown]
  - Inflammatory bowel disease [Unknown]
  - Irritable bowel syndrome [Unknown]
  - Depression [Unknown]
  - Lip dry [Unknown]
